FAERS Safety Report 7416387-1 (Version None)
Quarter: 2011Q2

REPORT INFORMATION
  Report Type: 
  Country: None (occurrence: None)
  Receive Date: 20110414
  Receipt Date: 20110405
  Transmission Date: 20111010
  Serious: Yes (Disabling, Other)
  Sender: FDA-Public Use
  Company Number: US-ASTRAZENECA-2011SE19225

PATIENT
  Age: 828 Month
  Sex: Male
  Weight: 106.5 kg

DRUGS (38)
  1. ADVIL LIQUI-GELS [Suspect]
     Dosage: 200 MG, AS NEEDED
     Dates: start: 20110301, end: 20110301
  2. TRAMADOL HYDROCHLORIDE [Suspect]
  3. ZOCOR [Suspect]
  4. PROZAC [Suspect]
  5. COREG [Suspect]
     Indication: CARDIAC DISORDER
  6. LOSARTAN [Concomitant]
     Indication: CARDIAC DISORDER
  7. BILBERRY [Concomitant]
  8. FOLIC ACID [Concomitant]
  9. TOPROL-XL [Suspect]
     Route: 048
  10. ALPRAZOLAM [Suspect]
  11. REGLAN [Suspect]
  12. OXYCODONE [Concomitant]
     Indication: BACK PAIN
  13. THERA TEARS [Concomitant]
  14. DIAZEPAM [Concomitant]
  15. CLOZAPINE [Concomitant]
     Dosage: 200 TO 300 MG
  16. XALATAN [Suspect]
  17. ALLOPURINOL [Concomitant]
  18. LANTUS [Concomitant]
     Indication: DIABETES MELLITUS
     Dosage: 12 UNITS DAILY
  19. METOPROLOL TARTRATE [Concomitant]
  20. FISH OIL [Concomitant]
  21. ADVIL LIQUI-GELS [Suspect]
     Indication: BACK PAIN
     Dosage: 200 MG, AS NEEDED
     Dates: end: 20100101
  22. CYCLOSPORINE [Suspect]
  23. DIGOXIN [Concomitant]
     Dosage: 1.5 MG ALTERNATING 1 PILL AND 2 PILL ONCE DAILY
  24. LIPITOR [Suspect]
  25. METFORMIN HCL [Suspect]
     Indication: DIABETES MELLITUS
     Dates: start: 20101018
  26. PROSCAR [Suspect]
  27. PLAVIX [Suspect]
  28. POTASSIUM CHLORIDE [Concomitant]
  29. FUROSEMIDE [Concomitant]
  30. PRAVASTATIN [Concomitant]
  31. PILOCARPINE [Concomitant]
     Indication: PROPHYLAXIS
  32. LUMIGAN [Concomitant]
     Indication: ABNORMAL SENSATION IN EYE
  33. LOTRIMIN [Suspect]
  34. VICODIN [Concomitant]
  35. ISTALOL [Concomitant]
     Indication: ABNORMAL SENSATION IN EYE
  36. ZETIA [Suspect]
  37. LUVOX [Suspect]
  38. ACETYLSALICYLIC ACID SRT [Concomitant]
     Indication: CARDIAC DISORDER

REACTIONS (10)
  - ASTHENIA [None]
  - ARTHROPATHY [None]
  - SLEEP DISORDER [None]
  - VOMITING [None]
  - BACK PAIN [None]
  - SKIN IRRITATION [None]
  - DYSPNOEA [None]
  - MYALGIA [None]
  - ABASIA [None]
  - NAUSEA [None]
